FAERS Safety Report 24852078 (Version 1)
Quarter: 2025Q1

REPORT INFORMATION
  Report Type: Spontaneous
  Country: US (occurrence: US)
  Receive Date: 20250116
  Receipt Date: 20250116
  Transmission Date: 20250408
  Serious: No
  Sender: SK LIFE SCIENCE
  Company Number: US-SK LIFE SCIENCE, INC-SKPVG-2024-002199

PATIENT

DRUGS (4)
  1. XCOPRI [Suspect]
     Active Substance: CENOBAMATE
     Indication: Epilepsy
     Route: 065
     Dates: start: 20230614
  2. XCOPRI [Suspect]
     Active Substance: CENOBAMATE
     Dosage: 250 MILLIGRAM, QD
     Route: 065
  3. HYDROMORPHONE [Concomitant]
     Active Substance: HYDROMORPHONE
     Indication: Product used for unknown indication
     Route: 065
  4. NARCAN [Concomitant]
     Active Substance: NALOXONE HYDROCHLORIDE
     Indication: Product used for unknown indication
     Route: 065

REACTIONS (2)
  - Fall [Not Recovered/Not Resolved]
  - Living in residential institution [Not Recovered/Not Resolved]

NARRATIVE: CASE EVENT DATE: 20240801
